FAERS Safety Report 17856283 (Version 1)
Quarter: 2020Q2

REPORT INFORMATION
  Report Type: Spontaneous
  Country: PT (occurrence: PT)
  Receive Date: 20200603
  Receipt Date: 20200603
  Transmission Date: 20200714
  Serious: Yes (Death, Hospitalization, Other)
  Sender: FDA-Public Use
  Company Number: PT-SA-2020SA139301

PATIENT

DRUGS (6)
  1. PYRAZINAMIDE. [Concomitant]
     Active Substance: PYRAZINAMIDE
     Indication: PULMONARY TUBERCULOSIS
     Dosage: UNK
     Route: 065
     Dates: start: 2018
  2. ETHAMBUTOL [Concomitant]
     Active Substance: ETHAMBUTOL HYDROCHLORIDE
     Indication: PULMONARY TUBERCULOSIS
     Dosage: UNK
     Route: 065
     Dates: start: 2018
  3. ISONIAZID. [Concomitant]
     Active Substance: ISONIAZID
     Indication: PULMONARY TUBERCULOSIS
     Dosage: UNK
     Route: 065
     Dates: start: 2018
  4. RIFAMPICIN [Suspect]
     Active Substance: RIFAMPIN
     Dosage: UNK
  5. RIFAMPICIN [Suspect]
     Active Substance: RIFAMPIN
     Indication: PULMONARY TUBERCULOSIS
     Dosage: 600 MG, QD
     Route: 065
     Dates: start: 2018
  6. RIFAMPICIN [Suspect]
     Active Substance: RIFAMPIN
     Dosage: UNK

REACTIONS (14)
  - Abdominal pain [Fatal]
  - Tachycardia [Fatal]
  - Haemoptysis [Fatal]
  - Haematuria [Fatal]
  - Cardio-respiratory arrest [Fatal]
  - Vascular access site haemorrhage [Fatal]
  - Dyspnoea [Fatal]
  - Hypotension [Fatal]
  - Haematemesis [Fatal]
  - Blood disorder [Fatal]
  - Respiratory distress [Fatal]
  - Disseminated intravascular coagulation [Fatal]
  - Haematochezia [Fatal]
  - Nausea [Fatal]
